FAERS Safety Report 19926153 (Version 1)
Quarter: 2021Q4

REPORT INFORMATION
  Report Type: Spontaneous
  Country: None (occurrence: US)
  Receive Date: 20211006
  Receipt Date: 20211006
  Transmission Date: 20220303
  Serious: Yes (Other)
  Sender: FDA-Public Use
  Company Number: US-CHURCH + DWIGHT CO., INC.-2120266

PATIENT

DRUGS (1)
  1. ORAJEL [Suspect]
     Active Substance: ALLANTOIN\BENZOCAINE\CAMPHOR (NATURAL)\DIMETHICONE\MENTHOL

REACTIONS (1)
  - Seizure [None]
